FAERS Safety Report 16962591 (Version 3)
Quarter: 2020Q2

REPORT INFORMATION
  Report Type: Spontaneous
  Country: CA (occurrence: CA)
  Receive Date: 20191025
  Receipt Date: 20200526
  Transmission Date: 20200713
  Serious: Yes (Life-Threatening, Hospitalization, Other)
  Sender: FDA-Public Use
  Company Number: CA-AMGEN-CANSP2019172939

PATIENT
  Age: 62 Year
  Sex: Male

DRUGS (14)
  1. SUCRALFATE TEVA [Concomitant]
     Active Substance: SUCRALFATE
  2. ANDROGEL [Concomitant]
     Active Substance: TESTOSTERONE
  3. DILAUDID [Concomitant]
     Active Substance: HYDROMORPHONE HYDROCHLORIDE
  4. RANITIDINE. [Concomitant]
     Active Substance: RANITIDINE
  5. SEROQUEL [Concomitant]
     Active Substance: QUETIAPINE FUMARATE
  6. PROLIA [Suspect]
     Active Substance: DENOSUMAB
     Indication: OSTEOPOROSIS
     Dosage: 60 MILLIGRAM PER MILLILITRE, Q6MO
     Route: 058
  7. ELAVIL [ALLOPURINOL] [Concomitant]
     Active Substance: ALLOPURINOL
  8. CALTRATE [Concomitant]
     Active Substance: CALCIUM CARBONATE
  9. EURO DOCUSATE C [Concomitant]
  10. STATEX [SIMVASTATIN] [Concomitant]
  11. TYLENOL [Concomitant]
     Active Substance: ACETAMINOPHEN
  12. VITAMIN D [ERGOCALCIFEROL] [Concomitant]
     Active Substance: ERGOCALCIFEROL
  13. FLEXERIL [CEFIXIME] [Concomitant]
     Active Substance: CEFIXIME
     Dosage: 10 MILLIGRAM
  14. TEVA PREGABALIN [Concomitant]
     Active Substance: PREGABALIN

REACTIONS (33)
  - Tongue discolouration [Not Recovered/Not Resolved]
  - Plicated tongue [Not Recovered/Not Resolved]
  - Hypoaesthesia [Not Recovered/Not Resolved]
  - Myalgia [Unknown]
  - Speech disorder [Not Recovered/Not Resolved]
  - Loss of consciousness [Not Recovered/Not Resolved]
  - Gait disturbance [Unknown]
  - Palpitations [Unknown]
  - Abdominal pain [Not Recovered/Not Resolved]
  - Pain in extremity [Not Recovered/Not Resolved]
  - Alopecia [Unknown]
  - Throat irritation [Not Recovered/Not Resolved]
  - Abdominal pain upper [Not Recovered/Not Resolved]
  - Gingival bleeding [Not Recovered/Not Resolved]
  - Diarrhoea [Not Recovered/Not Resolved]
  - Spinal pain [Not Recovered/Not Resolved]
  - Constipation [Not Recovered/Not Resolved]
  - Bladder disorder [Not Recovered/Not Resolved]
  - Bone pain [Not Recovered/Not Resolved]
  - Gingival pain [Unknown]
  - Decreased appetite [Unknown]
  - Oesophageal pain [Not Recovered/Not Resolved]
  - Paraesthesia [Not Recovered/Not Resolved]
  - Weight decreased [Not Recovered/Not Resolved]
  - Fatigue [Not Recovered/Not Resolved]
  - Dizziness [Not Recovered/Not Resolved]
  - Arthralgia [Not Recovered/Not Resolved]
  - Dyspepsia [Not Recovered/Not Resolved]
  - Pain in jaw [Unknown]
  - Crying [Unknown]
  - Contusion [Unknown]
  - Tympanic membrane disorder [Not Recovered/Not Resolved]
  - Burn oesophageal [Not Recovered/Not Resolved]
